FAERS Safety Report 10236391 (Version 2)
Quarter: 2014Q2

REPORT INFORMATION
  Report Type: Report from Study
  Country: US (occurrence: US)
  Receive Date: 20140613
  Receipt Date: 20140613
  Transmission Date: 20141212
  Serious: Yes (Hospitalization)
  Sender: FDA-Public Use
  Company Number: PHEH2014US003723

PATIENT
  Age: 59 Year
  Sex: Male

DRUGS (1)
  1. MYFORTIC [Suspect]
     Indication: RENAL TRANSPLANT
     Dosage: 2 DF, BID (EVERY 12 HOURS)
     Route: 048
     Dates: start: 20121116

REACTIONS (4)
  - Malaise [Unknown]
  - Pneumonia [Unknown]
  - Pulmonary oedema [Unknown]
  - Influenza [Unknown]
